FAERS Safety Report 5755966-4 (Version None)
Quarter: 2008Q2

REPORT INFORMATION
  Report Type: 
  Country: None (occurrence: None)
  Receive Date: 20080528
  Receipt Date: 20080511
  Transmission Date: 20081010
  Serious: Yes (Other)
  Sender: FDA-Public Use
  Company Number: 1-16152701

PATIENT
  Sex: Female

DRUGS (12)
  1. RIMSO-50 [Suspect]
     Dosage: 18 ML OF DMSO, INTRAVENOUS
     Route: 042
  2. RANITIDINE [Concomitant]
  3. DIMETHINDEN [Concomitant]
  4. GRANSETRON [Concomitant]
  5. FUROSEMIDE [Concomitant]
  6. DEXAMETHASONE TAB [Concomitant]
  7. ZOLPIDEM [Concomitant]
  8. ALLOPURINOL [Concomitant]
  9. ITRACONAZOLE [Concomitant]
  10. CIPROFLOXACIN HCL [Concomitant]
  11. ACYCLOVIR [Concomitant]
  12. ESOMEPRAZOLE [Concomitant]

REACTIONS (11)
  - BLOOD LACTATE DEHYDROGENASE INCREASED [None]
  - BLOOD PRESSURE SYSTOLIC INCREASED [None]
  - BRADYCARDIA [None]
  - EXTENSOR PLANTAR RESPONSE [None]
  - GAZE PALSY [None]
  - LOSS OF CONSCIOUSNESS [None]
  - NEURON-SPECIFIC ENOLASE INCREASED [None]
  - QUADRIPLEGIA [None]
  - RETROGRADE AMNESIA [None]
  - TONIC CONVULSION [None]
  - URINARY INCONTINENCE [None]
